FAERS Safety Report 15608201 (Version 1)
Quarter: 2018Q4

REPORT INFORMATION
  Report Type: Spontaneous
  Country: US (occurrence: US)
  Receive Date: 20181112
  Receipt Date: 20181112
  Transmission Date: 20190205
  Serious: No
  Sender: FDA-Public Use
  Company Number: US-PFIZER INC-2018456356

PATIENT
  Age: 51 Year
  Sex: Female
  Weight: 97.52 kg

DRUGS (6)
  1. SUCRALFATE. [Concomitant]
     Active Substance: SUCRALFATE
     Dosage: 1 DF, 2X/DAY
  2. SUCRALFATE. [Concomitant]
     Active Substance: SUCRALFATE
     Dosage: 1 DF, 1X/DAY
  3. CLARITINE [Concomitant]
     Active Substance: LORATADINE
     Indication: HYPERSENSITIVITY
  4. GABAPENTIN. [Suspect]
     Active Substance: GABAPENTIN
     Indication: LIMB DISCOMFORT
  5. GABAPENTIN. [Suspect]
     Active Substance: GABAPENTIN
     Indication: PAIN IN EXTREMITY
     Dosage: 300 MG, THREE TO FOUR TIMES A DAY
  6. GLUCOSAMINE SULFATE [Concomitant]
     Active Substance: GLUCOSAMINE SULFATE
     Dosage: UNK UNK, 1X/DAY

REACTIONS (6)
  - Drug ineffective for unapproved indication [Unknown]
  - Visual impairment [Recovering/Resolving]
  - Withdrawal syndrome [Unknown]
  - Memory impairment [Unknown]
  - Condition aggravated [Unknown]
  - Vision blurred [Recovering/Resolving]
